FAERS Safety Report 7834636-2 (Version None)
Quarter: 2011Q4

REPORT INFORMATION
  Report Type: 
  Country: None (occurrence: None)
  Receive Date: 20111020
  Receipt Date: 20111011
  Transmission Date: 20120403
  Serious: Yes (Other)
  Sender: FDA-Public Use
  Company Number: IND1-GB-2011-0049

PATIENT
  Age: 70 Year
  Sex: Male

DRUGS (1)
  1. INDOMETACIN (INDOMETACIN (CAPSULES) (INDOMETHACIN) [Suspect]
     Indication: GOUT
     Dosage: 75 MG (25 MG,3 IN 1 D),ORAL
     Route: 048
     Dates: end: 20071201

REACTIONS (7)
  - DRUG WITHDRAWAL SYNDROME [None]
  - CONDITION AGGRAVATED [None]
  - OEDEMA PERIPHERAL [None]
  - GAIT DISTURBANCE [None]
  - PRURITUS [None]
  - INTERSTITIAL LUNG DISEASE [None]
  - DYSPNOEA [None]
